FAERS Safety Report 24093762 (Version 2)
Quarter: 2024Q3

REPORT INFORMATION
  Report Type: Spontaneous
  Country: FR (occurrence: FR)
  Receive Date: 20240715
  Receipt Date: 20240805
  Transmission Date: 20241017
  Serious: Yes (Other)
  Sender: PFIZER
  Company Number: FR-PFIZER INC-202400212406

PATIENT
  Age: 52 Year
  Sex: Female
  Weight: 76 kg

DRUGS (6)
  1. RIMEGEPANT [Suspect]
     Active Substance: RIMEGEPANT
     Indication: Migraine
     Dosage: 75 MG ONCE DAILY AS NEEDED
     Route: 048
     Dates: start: 20240314, end: 20240604
  2. RIMEGEPANT [Suspect]
     Active Substance: RIMEGEPANT
     Dosage: 75 MG ONCE DAILY AS NEEDED
     Route: 048
     Dates: start: 20240314, end: 20240604
  3. RIMEGEPANT [Suspect]
     Active Substance: RIMEGEPANT
     Dosage: 75 MG ONCE DAILY AS NEEDED
     Route: 048
     Dates: start: 20240314, end: 20240604
  4. RIMEGEPANT [Suspect]
     Active Substance: RIMEGEPANT
     Dosage: 75 MG ONCE DAILY AS NEEDED
     Route: 048
     Dates: start: 20240314, end: 20240604
  5. RIMEGEPANT [Suspect]
     Active Substance: RIMEGEPANT
     Dosage: 75 MG ONCE DAILY AS NEEDED
     Route: 048
     Dates: start: 20240314, end: 20240604
  6. IRBESARTAN [Concomitant]
     Active Substance: IRBESARTAN
     Indication: Hypertension
     Dosage: 300 MG ONCE DAILY

REACTIONS (1)
  - Hypothermia [Recovered/Resolved]

NARRATIVE: CASE EVENT DATE: 20240411
